FAERS Safety Report 5280652-7 (Version None)
Quarter: 2007Q1

REPORT INFORMATION
  Report Type: 
  Country: None (occurrence: None)
  Receive Date: 20070329
  Receipt Date: 20070321
  Transmission Date: 20070707
  Serious: Yes (Hospitalization)
  Sender: FDA-Public Use
  Company Number: US-SANOFI-SYNTHELABO-F03200700007

PATIENT
  Sex: Male

DRUGS (13)
  1. ZEBETA [Concomitant]
     Dosage: UNK
     Route: 048
     Dates: start: 19930401
  2. COZAAR [Concomitant]
     Dosage: UNK
     Route: 048
     Dates: start: 20030103
  3. ASPIRIN [Concomitant]
     Dosage: UNK
     Route: 065
     Dates: start: 19930401
  4. FOLINIC ACID [Suspect]
     Indication: COLORECTAL CANCER METASTATIC
     Route: 042
     Dates: start: 20061211, end: 20061211
  5. FLUOROURACIL [Suspect]
     Indication: COLORECTAL CANCER METASTATIC
     Route: 042
     Dates: start: 20061211, end: 20061211
  6. BEVACIZUMAB [Suspect]
     Indication: COLORECTAL CANCER METASTATIC
     Route: 042
     Dates: start: 20061127, end: 20061127
  7. OXALIPLATIN [Suspect]
     Indication: COLORECTAL CANCER METASTATIC
     Route: 042
     Dates: start: 20061211, end: 20061211
  8. PLAVIX [Concomitant]
     Dosage: UNK
     Route: 048
     Dates: start: 20061207
  9. ATIVAN [Concomitant]
     Dosage: UNK
     Route: 065
     Dates: start: 20061211
  10. DECADRON [Concomitant]
     Dosage: UNK
     Route: 065
     Dates: start: 20061026
  11. ALOXI [Concomitant]
     Dosage: UNK
     Route: 042
     Dates: start: 20061026
  12. LIPITOR [Concomitant]
     Dosage: UNK
     Route: 048
     Dates: start: 20061207
  13. VITAMIN CAP [Concomitant]
     Dosage: UNK
     Route: 065

REACTIONS (1)
  - ATRIAL FIBRILLATION [None]
